FAERS Safety Report 13940100 (Version 1)
Quarter: 2017Q3

REPORT INFORMATION
  Report Type: Spontaneous
  Country: US (occurrence: US)
  Receive Date: 20170906
  Receipt Date: 20170906
  Transmission Date: 20171127
  Serious: No
  Sender: FDA-Public Use
  Company Number: US-009507513-1708USA011369

PATIENT
  Sex: Female

DRUGS (1)
  1. IMPLANON [Suspect]
     Active Substance: ETONOGESTREL
     Dosage: 1 ROD/ THREEE YEARS, STRENGTH: 68 (UNITS UNSPECIFIED)
     Route: 059

REACTIONS (2)
  - Complication associated with device [Unknown]
  - No adverse event [Unknown]
